FAERS Safety Report 12443713 (Version 1)
Quarter: 2016Q2

REPORT INFORMATION
  Report Type: Spontaneous
  Country: US (occurrence: US)
  Receive Date: 20160607
  Receipt Date: 20160607
  Transmission Date: 20160815
  Serious: No
  Sender: FDA-Public Use
  Company Number: US-TEVA-664998USA

PATIENT
  Sex: Female

DRUGS (23)
  1. BACLOFEN. [Concomitant]
     Active Substance: BACLOFEN
  2. Q-PAP [Concomitant]
     Active Substance: ACETAMINOPHEN
  3. ZOLOFT [Concomitant]
     Active Substance: SERTRALINE HYDROCHLORIDE
  4. SINGULAIR [Concomitant]
     Active Substance: MONTELUKAST SODIUM
  5. CRANBERRY. [Concomitant]
     Active Substance: CRANBERRY
  6. MULTIVITAMIN [Concomitant]
     Active Substance: VITAMINS
  7. DETROL [Concomitant]
     Active Substance: TOLTERODINE TARTRATE
  8. ELIDEL [Concomitant]
     Active Substance: PIMECROLIMUS
  9. COPAXONE [Suspect]
     Active Substance: GLATIRAMER ACETATE
     Indication: MULTIPLE SCLEROSIS
     Route: 058
     Dates: start: 20160311
  10. GLUCOSAMINE /CHONDROITIN [Concomitant]
  11. PROTONIX [Concomitant]
     Active Substance: PANTOPRAZOLE SODIUM
  12. FLAXSEED [Concomitant]
     Active Substance: FLAX SEED
  13. FIBERCON [Concomitant]
     Active Substance: CALCIUM POLYCARBOPHIL
  14. ALLEGRA [Concomitant]
     Active Substance: FEXOFENADINE HYDROCHLORIDE
  15. PROVENTIL [Concomitant]
     Active Substance: ALBUTEROL
  16. VITAMIN E [Concomitant]
     Active Substance: .ALPHA.-TOCOPHEROL
  17. CALCIUM+D [Concomitant]
  18. LIPITOR [Concomitant]
     Active Substance: ATORVASTATIN CALCIUM
  19. CLONAZEPAM. [Concomitant]
     Active Substance: CLONAZEPAM
  20. COLACE [Concomitant]
     Active Substance: DOCUSATE SODIUM
  21. FLONASE [Concomitant]
     Active Substance: FLUTICASONE PROPIONATE
  22. TYLENOL [Concomitant]
     Active Substance: ACETAMINOPHEN
  23. ASPIRIN. [Concomitant]
     Active Substance: ASPIRIN

REACTIONS (2)
  - Injection site erythema [Unknown]
  - Injection site mass [Unknown]

NARRATIVE: CASE EVENT DATE: 2016
